FAERS Safety Report 13613871 (Version 1)
Quarter: 2017Q2

REPORT INFORMATION
  Report Type: Spontaneous
  Country: US (occurrence: US)
  Receive Date: 20170606
  Receipt Date: 20170606
  Transmission Date: 20170830
  Serious: No
  Sender: FDA-Public Use
  Company Number: US-TEVA-732176ACC

PATIENT
  Sex: Male
  Weight: 70.37 kg

DRUGS (1)
  1. ROGAIN [Suspect]
     Active Substance: MINOXIDIL
     Indication: ALOPECIA
     Route: 061

REACTIONS (1)
  - Chloasma [Not Recovered/Not Resolved]
